FAERS Safety Report 5502663-6 (Version None)
Quarter: 2007Q4

REPORT INFORMATION
  Report Type: 
  Country: None (occurrence: None)
  Receive Date: 20071031
  Receipt Date: 20071023
  Transmission Date: 20080405
  Serious: Yes (Life-Threatening, Hospitalization, Other)
  Sender: FDA-Public Use
  Company Number: US-ASTRAZENECA-2007UW18608

PATIENT
  Age: 68 Year
  Sex: Female
  Weight: 59.5 kg

DRUGS (10)
  1. CRESTOR [Suspect]
     Route: 048
     Dates: start: 20060829, end: 20070711
  2. MIRAPEX [Concomitant]
  3. BUSPAR [Concomitant]
  4. ASPIRIN [Concomitant]
  5. FOSAMAX [Concomitant]
  6. GABAPENTIN [Concomitant]
  7. LORTAB [Concomitant]
  8. NABUMETONE [Concomitant]
  9. PROPRANOLOL [Concomitant]
  10. SEROQUEL [Concomitant]
     Route: 048

REACTIONS (7)
  - DEHYDRATION [None]
  - HAEMATEMESIS [None]
  - HEADACHE [None]
  - HEPATITIS [None]
  - INTERNATIONAL NORMALISED RATIO INCREASED [None]
  - NAUSEA [None]
  - VOMITING [None]
